FAERS Safety Report 7843735-0 (Version None)
Quarter: 2011Q4

REPORT INFORMATION
  Report Type: 
  Country: None (occurrence: None)
  Receive Date: 20111025
  Receipt Date: 20111021
  Transmission Date: 20120403
  Serious: Yes (Other)
  Sender: FDA-Public Use
  Company Number: US-ROCHE-1006343

PATIENT
  Sex: Female

DRUGS (2)
  1. BONIVA [Suspect]
     Indication: OSTEOPOROSIS
  2. FOSAMAX [Suspect]
     Indication: OSTEOPOROSIS

REACTIONS (2)
  - ANXIETY [None]
  - OSTEONECROSIS OF JAW [None]
